FAERS Safety Report 18868646 (Version 2)
Quarter: 2021Q1

REPORT INFORMATION
  Report Type: Spontaneous
  Country: GB (occurrence: GB)
  Receive Date: 20210209
  Receipt Date: 20210222
  Transmission Date: 20210420
  Serious: Yes (Hospitalization, Other)
  Sender: FDA-Public Use
  Company Number: NVSC2021GB027872

PATIENT
  Age: 13 Year
  Sex: Male

DRUGS (1)
  1. CO?AMOXICLAV [Suspect]
     Active Substance: AMOXICILLIN\CLAVULANATE POTASSIUM
     Indication: ARTHRITIS BACTERIAL
     Dosage: UNK
     Route: 065

REACTIONS (5)
  - Septic arthritis staphylococcal [Recovering/Resolving]
  - Condition aggravated [Unknown]
  - Arthritis bacterial [Unknown]
  - Product use in unapproved indication [Unknown]
  - Arthritis [Recovering/Resolving]
